FAERS Safety Report 16417540 (Version 2)
Quarter: 2020Q2

REPORT INFORMATION
  Report Type: Spontaneous
  Country: US (occurrence: US)
  Receive Date: 20190611
  Receipt Date: 20200421
  Transmission Date: 20200713
  Serious: Yes (Other)
  Sender: FDA-Public Use
  Company Number: US-GILEAD-2019-0412803

PATIENT
  Sex: Female

DRUGS (1)
  1. COMPLERA [Suspect]
     Active Substance: EMTRICITABINE\RILPIVIRINE HYDROCHLORIDE\TENOFOVIR DISOPROXIL FUMARATE
     Indication: HIV INFECTION
     Dosage: UNK
     Route: 048
     Dates: start: 201109, end: 201905

REACTIONS (9)
  - Anxiety [Unknown]
  - Economic problem [Unknown]
  - Fracture [Unknown]
  - Anhedonia [Unknown]
  - Emotional distress [Unknown]
  - Bone loss [Unknown]
  - Pain [Unknown]
  - Osteonecrosis [Unknown]
  - Bone density decreased [Unknown]
